FAERS Safety Report 5394364-2 (Version None)
Quarter: 2007Q3

REPORT INFORMATION
  Report Type: 
  Country: None (occurrence: None)
  Receive Date: 20070723
  Receipt Date: 20070718
  Transmission Date: 20080115
  Serious: Yes (Life-Threatening, Hospitalization, Disabling, Other)
  Sender: FDA-Public Use
  Company Number: PHEH2006US12393

PATIENT
  Age: 42 Year
  Sex: Male
  Weight: 167.8 kg

DRUGS (3)
  1. DEPAKOTE [Concomitant]
     Dosage: THREE 500 MG TABS IN A.M./TWO H.S.
     Route: 048
  2. DEPAKOTE [Concomitant]
     Dosage: ONE 250 MG TAB AT NOON
     Route: 048
  3. CLOZARIL [Suspect]
     Indication: SCHIZOPHRENIA
     Dosage: 400 MG, QD
     Route: 048
     Dates: start: 20010327

REACTIONS (14)
  - BLOOD GLUCOSE INCREASED [None]
  - BLOOD PRESSURE INCREASED [None]
  - BLOOD THYROID STIMULATING HORMONE INCREASED [None]
  - BLOOD TRIGLYCERIDES INCREASED [None]
  - CHRONIC OBSTRUCTIVE PULMONARY DISEASE [None]
  - COMA [None]
  - DIABETES MELLITUS [None]
  - DYSARTHRIA [None]
  - GLYCOSYLATED HAEMOGLOBIN INCREASED [None]
  - HYPERGLYCAEMIA [None]
  - HYPERTENSION [None]
  - MOBILITY DECREASED [None]
  - PNEUMONIA [None]
  - SINUSITIS [None]
